FAERS Safety Report 12616968 (Version 1)
Quarter: 2016Q3

REPORT INFORMATION
  Report Type: Report from Study
  Country: US (occurrence: US)
  Receive Date: 20160803
  Receipt Date: 20160803
  Transmission Date: 20161109
  Serious: Yes (Other)
  Sender: FDA-Public Use
  Company Number: US-ROCHE-772216

PATIENT
  Age: 64 Year
  Sex: Male
  Weight: 80.4 kg

DRUGS (10)
  1. VISMODEGIB [Suspect]
     Active Substance: VISMODEGIB
     Dosage: 150 MG, QD
     Route: 048
  2. VISMODEGIB [Suspect]
     Active Substance: VISMODEGIB
     Indication: SMALL CELL LUNG CANCER
     Dosage: 150 MG, QD
     Route: 048
  3. VISMODEGIB [Suspect]
     Active Substance: VISMODEGIB
     Dosage: 150 MG, QD
     Route: 048
  4. VISMODEGIB [Suspect]
     Active Substance: VISMODEGIB
     Dosage: 150 MG, QD
     Route: 048
  5. VISMODEGIB [Suspect]
     Active Substance: VISMODEGIB
     Dosage: 150 MG, QD
     Route: 048
     Dates: start: 20100309, end: 20100518
  6. VISMODEGIB [Suspect]
     Active Substance: VISMODEGIB
     Dosage: 150 MG, QD
     Route: 048
  7. ETOPOSIDE. [Suspect]
     Active Substance: ETOPOSIDE
     Indication: SMALL CELL LUNG CANCER
     Dosage: 100 MG/M2, QDX3D/21DC
     Route: 042
  8. VISMODEGIB [Suspect]
     Active Substance: VISMODEGIB
     Dosage: 150 MG, QD
     Route: 048
  9. VISMODEGIB [Suspect]
     Active Substance: VISMODEGIB
     Dosage: 150 MG, QD
     Route: 048
  10. CISPLATIN. [Suspect]
     Active Substance: CISPLATIN
     Indication: SMALL CELL LUNG CANCER
     Dosage: 75 MG/M2, Q21D
     Route: 042

REACTIONS (6)
  - White blood cell count decreased [Unknown]
  - Fatigue [Unknown]
  - Hyponatraemia [Unknown]
  - Neutrophil count decreased [Unknown]
  - Hyponatraemia [Recovered/Resolved]
  - Anaemia [Unknown]

NARRATIVE: CASE EVENT DATE: 20091208
